FAERS Safety Report 17830137 (Version 1)
Quarter: 2020Q2

REPORT INFORMATION
  Report Type: Spontaneous
  Country: US (occurrence: US)
  Receive Date: 20200527
  Receipt Date: 20200527
  Transmission Date: 20200714
  Serious: Yes (Hospitalization, Other)
  Sender: FDA-Public Use
  Company Number: US-PFIZER INC-2020205247

PATIENT
  Age: 51 Year
  Sex: Female
  Weight: 76 kg

DRUGS (14)
  1. CLONAZEPAM. [Concomitant]
     Active Substance: CLONAZEPAM
     Dosage: 0.5 MG
     Dates: start: 20191029, end: 201911
  2. CLOZAPINE. [Suspect]
     Active Substance: CLOZAPINE
     Indication: PSYCHOTIC DISORDER
     Dosage: 200 MG, 1X/DAY (IN THE MORNING)
     Route: 048
  3. BENZTROPINE [BENZATROPINE] [Suspect]
     Active Substance: BENZTROPINE
     Indication: SALIVARY HYPERSECRETION
     Dosage: 0.5 MG, 1X/DAY (0.5 MG TAB AT 0.5 MG, TAKEN ORALLY, AT BEDTIME)
     Dates: end: 20191115
  4. CLOZAPINE. [Suspect]
     Active Substance: CLOZAPINE
     Dosage: 50 MG, 1X/DAY (AT BEDTIME ALONG WITH TWO 200 MG TABLETS TO EQUAL 450 MG AT BEDTIME)
     Route: 048
     Dates: end: 20191021
  5. BENZTROPINE [BENZATROPINE] [Suspect]
     Active Substance: BENZTROPINE
     Indication: SALIVARY HYPERSECRETION
     Dosage: 1 MG, 1X/DAY (AT BED TIME)
     Route: 048
  6. CLONAZEPAM. [Concomitant]
     Active Substance: CLONAZEPAM
     Dosage: 0.5 MG TABLET AT 0.25 MG TAKEN ORALLY, EVERY MORNING
     Dates: start: 20191029
  7. CLOZAPINE. [Suspect]
     Active Substance: CLOZAPINE
     Dosage: 100 MG, 1X/DAY (AT BEDTIME ALONG WITH TWO 200 MG TABLETS TO EQUAL 500 MG AT BEDTIME)
     Route: 048
     Dates: start: 20191022, end: 20191112
  8. CLOZAPINE. [Suspect]
     Active Substance: CLOZAPINE
     Dosage: 400 MG, 1X/DAY AT BEDTIME
     Route: 048
     Dates: end: 20200212
  9. CLOZAPINE. [Suspect]
     Active Substance: CLOZAPINE
     Indication: OBSESSIVE THOUGHTS
     Dosage: 200 MG, 1X/DAY(AT BEDTIME)
     Route: 048
  10. CLONAZEPAM. [Concomitant]
     Active Substance: CLONAZEPAM
     Indication: ANXIETY
     Dosage: 0.5 MG
     Dates: end: 20191029
  11. IPRATROPIUM BROMIDE. [Concomitant]
     Active Substance: IPRATROPIUM BROMIDE
     Indication: SALIVARY HYPERSECRETION
     Dosage: 42 UG (0.06%) SPRAY AT 2 SPRAYS IN THE MOUTH, UNDER THE TONGUE, AT BEDTIME FOR HYPERSALIVATION
     Route: 048
  12. SERTRALINE HCL [Suspect]
     Active Substance: SERTRALINE HYDROCHLORIDE
     Indication: DEPRESSION
     Dosage: 450 MG, 1X/DAY
     Route: 048
     Dates: end: 20191016
  13. SERTRALINE HCL [Suspect]
     Active Substance: SERTRALINE HYDROCHLORIDE
     Indication: ANXIETY
     Dosage: 50 MG, 1X/DAY (IN THE MORNING)
     Route: 048
     Dates: start: 20191016, end: 201911
  14. CLOZAPINE. [Suspect]
     Active Substance: CLOZAPINE
     Dosage: 600 MG, 1X/DAY AT BEDTIME
     Route: 048
     Dates: start: 20200213

REACTIONS (17)
  - Nervousness [Unknown]
  - Agitation [Unknown]
  - Libido disorder [Recovering/Resolving]
  - Terminal insomnia [Unknown]
  - Irritability [Unknown]
  - Schizoaffective disorder bipolar type [Not Recovered/Not Resolved]
  - Tachyphrenia [Recovering/Resolving]
  - Anxiety [Not Recovered/Not Resolved]
  - Depressed mood [Recovering/Resolving]
  - Disturbance in attention [Recovering/Resolving]
  - Cognitive disorder [Unknown]
  - Suicidal ideation [Recovering/Resolving]
  - Hallucination, auditory [Recovered/Resolved]
  - Homicidal ideation [Recovering/Resolving]
  - Poor quality sleep [Unknown]
  - Memory impairment [Recovered/Resolved]
  - Stress [Unknown]

NARRATIVE: CASE EVENT DATE: 201910
